FAERS Safety Report 8451866 (Version 2)
Quarter: 2013Q2

REPORT INFORMATION
  Report Type: Spontaneous
  Country: US (occurrence: None)
  Receive Date: 20120213
  Receipt Date: 20130313
  Transmission Date: 20140414
  Serious: Yes (Other)
  Sender: FDA-Public Use
  Company Number: 1000027079

PATIENT
  Sex: Female

DRUGS (2)
  1. SAVELLA [Suspect]
     Indication: FIBROMYALGIA
  2. PAXIL [Suspect]
     Indication: DEPRESSION

REACTIONS (1)
  - SEROTONIN SYNDROME [None]
